FAERS Safety Report 19838079 (Version 1)
Quarter: 2021Q3

REPORT INFORMATION
  Report Type: Spontaneous
  Country: US (occurrence: US)
  Receive Date: 20210916
  Receipt Date: 20210916
  Transmission Date: 20211014
  Serious: Yes (Hospitalization, Other)
  Sender: FDA-Public Use
  Company Number: US-LUPIN PHARMACEUTICALS INC.-2021-17445

PATIENT
  Age: 35 Year
  Sex: Female

DRUGS (5)
  1. TRIAMCINOLONE [Suspect]
     Active Substance: TRIAMCINOLONE
     Dosage: 4 MILLIGRAM (APPROXIMATELY EVERY 3?4 MONTHS)
  2. LUPIN^S RANIBIZUMAB [Suspect]
     Active Substance: RANIBIZUMAB
     Indication: NEOVASCULAR AGE-RELATED MACULAR DEGENERATION
     Dosage: UNK
  3. BEVACIZUMAB. [Suspect]
     Active Substance: BEVACIZUMAB
     Indication: MACULOPATHY
     Dosage: 4 MILLIGRAM
  4. LUPIN^S RANIBIZUMAB [Suspect]
     Active Substance: RANIBIZUMAB
     Indication: MACULOPATHY
  5. TRIAMCINOLONE [Suspect]
     Active Substance: TRIAMCINOLONE
     Indication: MACULOPATHY
     Dosage: 4 MILLIGRAM, INJECTION

REACTIONS (3)
  - Injection site discharge [Recovered/Resolved]
  - Cataract [Recovered/Resolved]
  - Haemorrhage [Recovered/Resolved]
